FAERS Safety Report 16422471 (Version 3)
Quarter: 2020Q1

REPORT INFORMATION
  Report Type: Spontaneous
  Country: US (occurrence: US)
  Receive Date: 20190612
  Receipt Date: 20200306
  Transmission Date: 20200409
  Serious: Yes (Life-Threatening)
  Sender: FDA-Public Use
  Company Number: PHEH2019US023834

PATIENT
  Sex: Female

DRUGS (1)
  1. SIMBRINZA [Suspect]
     Active Substance: BRIMONIDINE TARTRATE\BRINZOLAMIDE
     Indication: INTRAOCULAR PRESSURE INCREASED
     Dosage: 3 TO 4 TIMES PER DAY
     Route: 047

REACTIONS (4)
  - Feeling abnormal [Unknown]
  - Eye inflammation [Unknown]
  - Product packaging quantity issue [Unknown]
  - Visual impairment [Unknown]
